FAERS Safety Report 8888495 (Version 3)
Quarter: 2013Q3

REPORT INFORMATION
  Report Type: Report from Study
  Country: JP (occurrence: JP)
  Receive Date: 20121106
  Receipt Date: 20130813
  Transmission Date: 20140515
  Serious: Yes (Other)
  Sender: FDA-Public Use
  Company Number: JP-VERTEX PHARMACEUTICAL INC.-2012-024018

PATIENT
  Age: 47 Year
  Sex: Male

DRUGS (8)
  1. VX-950 (TELAPREVIR) [Suspect]
     Indication: CHRONIC HEPATITIS C
     Dosage: 2250 MG, QD
     Route: 048
     Dates: start: 20120905, end: 20121014
  2. VX-950 (TELAPREVIR) [Suspect]
     Dosage: 1500 MG, QD
     Route: 048
     Dates: start: 20121015, end: 20121104
  3. VX-950 (TELAPREVIR) [Suspect]
     Dosage: 750 MG, QD
     Route: 048
     Dates: start: 20121105, end: 20121112
  4. RIBAVIRIN [Suspect]
     Indication: CHRONIC HEPATITIS C
     Dosage: 1000 MG, QD
     Route: 048
     Dates: start: 20120905, end: 20121111
  5. RIBAVIRIN [Suspect]
     Dosage: 400 MG, QD
     Route: 048
     Dates: start: 20121126
  6. PEGINTERFERON ALFA-2B [Concomitant]
     Indication: HEPATITIS C
     Dosage: 1.5 ?G/KG, QW
     Route: 058
     Dates: start: 20120905, end: 20121105
  7. PEGINTERFERON ALFA-2B [Concomitant]
     Dosage: 1.5 ?G/KG, QW
     Route: 058
     Dates: start: 20121119
  8. FEBURIC [Concomitant]
     Dosage: 40 MG, QD
     Route: 048

REACTIONS (2)
  - Rash [Recovered/Resolved]
  - Haemoglobin decreased [Recovered/Resolved]
